FAERS Safety Report 8328591-9 (Version None)
Quarter: 2012Q2

REPORT INFORMATION
  Report Type: 
  Country: None (occurrence: None)
  Receive Date: 20120430
  Receipt Date: 20120412
  Transmission Date: 20120825
  Serious: No
  Sender: FDA-Public Use
  Company Number: 2012MA005029

PATIENT
  Age: 45 Year
  Sex: Male

DRUGS (2)
  1. GEMCITABINE HYDROCHLORIDE [Suspect]
     Indication: LUNG NEOPLASM MALIGNANT
     Dosage: 1000 MG/M^2;Q4W
  2. CISPLATIN [Suspect]
     Dosage: 100 MG/M^2;Q4W

REACTIONS (7)
  - GAIT DISTURBANCE [None]
  - MUSCLE NECROSIS [None]
  - MYALGIA [None]
  - PAIN IN EXTREMITY [None]
  - LEUKOCYTOCLASTIC VASCULITIS [None]
  - OEDEMA PERIPHERAL [None]
  - THROMBOSIS [None]
